FAERS Safety Report 19954097 (Version 1)
Quarter: 2021Q4

REPORT INFORMATION
  Report Type: Spontaneous
  Country: CA (occurrence: CA)
  Receive Date: 20211013
  Receipt Date: 20211013
  Transmission Date: 20220303
  Serious: Yes (Other)
  Sender: FDA-Public Use
  Company Number: CA-PFIZER INC-202101117333

PATIENT
  Age: 43 Year
  Sex: Male
  Weight: 104 kg

DRUGS (1)
  1. RUXIENCE [Suspect]
     Active Substance: RITUXIMAB-PVVR
     Indication: Autoimmune haemolytic anaemia
     Dosage: 881 MG WEEKLY FOR 4 WEEKS
     Route: 042
     Dates: start: 20210909

REACTIONS (9)
  - Deep vein thrombosis [Recovering/Resolving]
  - Pain in extremity [Unknown]
  - Vital functions abnormal [Recovered/Resolved]
  - Off label use [Unknown]
  - Inappropriate schedule of product administration [Unknown]
  - Blood pressure fluctuation [Unknown]
  - Body temperature decreased [Recovered/Resolved]
  - Heart rate irregular [Recovered/Resolved]
  - Respiratory rate increased [Recovered/Resolved]

NARRATIVE: CASE EVENT DATE: 20210909
